FAERS Safety Report 7764726-4 (Version None)
Quarter: 2011Q3

REPORT INFORMATION
  Report Type: 
  Country: None (occurrence: None)
  Receive Date: 20110916
  Receipt Date: 20110905
  Transmission Date: 20111222
  Serious: Yes (Hospitalization)
  Sender: FDA-Public Use
  Company Number: TCI2011A04807

PATIENT
  Age: 28 Year
  Sex: Female

DRUGS (4)
  1. TENORMIN [Concomitant]
  2. INDERAL [Suspect]
     Indication: SINUS TACHYCARDIA
     Dosage: 20 MG (20 MG, 1 D) 60 MG (20 MG, 3 IN 1 D)
     Route: 048
     Dates: start: 20110427, end: 20110727
  3. INDERAL [Suspect]
     Indication: SINUS TACHYCARDIA
     Dosage: 20 MG (20 MG, 1 D) 60 MG (20 MG, 3 IN 1 D)
     Route: 048
     Dates: start: 20110728, end: 20110808
  4. ROZEREM [Suspect]
     Indication: INSOMNIA
     Dosage: 8 MG ( 8 MG, 1 IN 1 D)
     Route: 048
     Dates: start: 20110730, end: 20110810

REACTIONS (4)
  - HEPATIC FUNCTION ABNORMAL [None]
  - ASPARTATE AMINOTRANSFERASE INCREASED [None]
  - ALANINE AMINOTRANSFERASE INCREASED [None]
  - LIVER DISORDER [None]
